FAERS Safety Report 23785852 (Version 1)
Quarter: 2024Q2

REPORT INFORMATION
  Report Type: Report from Study
  Country: US (occurrence: US)
  Receive Date: 20240425
  Receipt Date: 20240425
  Transmission Date: 20240716
  Serious: Yes (Hospitalization, Other)
  Sender: FDA-Public Use
  Company Number: US-ABBVIE-5729429

PATIENT
  Age: 61 Year
  Sex: Male

DRUGS (6)
  1. SKYRIZI [Suspect]
     Active Substance: RISANKIZUMAB-RZAA
     Indication: Crohn^s disease
     Dosage: WEEK 12, FORM STRENGTH: 2.4 MILLILITRE(S)
     Route: 058
     Dates: start: 20230703, end: 20230703
  2. SKYRIZI [Suspect]
     Active Substance: RISANKIZUMAB-RZAA
     Dosage: FORM STRENGTH: 2.4 MILLILITRE(S)
     Route: 058
     Dates: start: 20231031
  3. ACETAMINOPHEN [Suspect]
     Active Substance: ACETAMINOPHEN
     Indication: Product used for unknown indication
     Route: 065
  4. SKYRIZI [Suspect]
     Active Substance: RISANKIZUMAB-RZAA
     Indication: Crohn^s disease
     Dosage: FORM STRENGTH: 600 MILLIGRAM, WEEK 0
     Route: 042
     Dates: start: 20230411, end: 20230411
  5. SKYRIZI [Suspect]
     Active Substance: RISANKIZUMAB-RZAA
     Indication: Crohn^s disease
     Dosage: FORM STRENGTH: 600 MILLIGRAM WEEK 8
     Route: 042
     Dates: start: 202306, end: 202306
  6. SKYRIZI [Suspect]
     Active Substance: RISANKIZUMAB-RZAA
     Indication: Crohn^s disease
     Dosage: FORM STRENGTH: 600 MILLIGRAM WEEK 4
     Route: 042
     Dates: start: 202305, end: 202305

REACTIONS (6)
  - Gastrostomy [Not Recovered/Not Resolved]
  - Hyperhidrosis [Unknown]
  - Intestinal perforation [Recovered/Resolved]
  - Pyrexia [Recovered/Resolved]
  - Stoma site haemorrhage [Recovered/Resolved]
  - Intestinal perforation [Unknown]

NARRATIVE: CASE EVENT DATE: 20231017
